FAERS Safety Report 20045361 (Version 1)
Quarter: 2021Q4

REPORT INFORMATION
  Report Type: Spontaneous
  Country: US (occurrence: US)
  Receive Date: 20211108
  Receipt Date: 20211108
  Transmission Date: 20220303
  Serious: Yes (Hospitalization)
  Sender: FDA-Public Use
  Company Number: US-TEVA-2021-US-1975132

PATIENT
  Age: 30 Year
  Sex: Male

DRUGS (1)
  1. FILGRASTIM [Suspect]
     Active Substance: FILGRASTIM
     Indication: Haematopoietic stem cell mobilisation
     Dosage: 10 UG/KG DAILY; 3 DOSES OF FILGRASTIM
     Route: 065

REACTIONS (5)
  - Glomerulonephritis [Unknown]
  - Thrombocytopenia [Unknown]
  - Bone pain [Unknown]
  - Oropharyngeal pain [Unknown]
  - Abdominal discomfort [Unknown]
